FAERS Safety Report 23509203 (Version 1)
Quarter: 2024Q1

REPORT INFORMATION
  Report Type: Spontaneous
  Country: US (occurrence: None)
  Receive Date: 20240209
  Receipt Date: 20240209
  Transmission Date: 20240410
  Serious: No
  Sender: FDA-Public Use
  Company Number: None

PATIENT
  Age: 40 Year
  Sex: Male
  Weight: 90 kg

DRUGS (2)
  1. SERTRALINE HYDROCHLORIDE [Suspect]
     Active Substance: SERTRALINE HYDROCHLORIDE
     Dosage: OTHER QUANTITY : 1.5 TABLET(S);?FREQUENCY : AT BEDTIME;?
     Route: 048
  2. VITAMIN D3 [Concomitant]
     Active Substance: CHOLECALCIFEROL

REACTIONS (7)
  - Wrong technique in product usage process [None]
  - Throat irritation [None]
  - Throat irritation [None]
  - Oropharyngeal pain [None]
  - Oesophageal disorder [None]
  - Product communication issue [None]
  - Product label issue [None]

NARRATIVE: CASE EVENT DATE: 20240201
